FAERS Safety Report 18361359 (Version 1)
Quarter: 2020Q4

REPORT INFORMATION
  Report Type: Spontaneous
  Country: HK (occurrence: HK)
  Receive Date: 20201008
  Receipt Date: 20201008
  Transmission Date: 20210114
  Serious: Yes (Hospitalization)
  Sender: FDA-Public Use
  Company Number: HK-GUERBET-HK-20200007

PATIENT
  Age: 49 Year
  Sex: Male
  Weight: 104.32 kg

DRUGS (1)
  1. DOTAREM [Suspect]
     Active Substance: GADOTERATE MEGLUMINE
     Indication: MAGNETIC RESONANCE CHOLANGIOPANCREATOGRAPHY
     Route: 042
     Dates: start: 20200902, end: 20200902

REACTIONS (2)
  - Acute pulmonary oedema [Recovered/Resolved]
  - Anaphylactic reaction [Recovered/Resolved]

NARRATIVE: CASE EVENT DATE: 20200902
